FAERS Safety Report 14683064 (Version 1)
Quarter: 2018Q1

REPORT INFORMATION
  Report Type: Spontaneous
  Country: US (occurrence: US)
  Receive Date: 20180327
  Receipt Date: 20180327
  Transmission Date: 20180509
  Serious: No
  Sender: FDA-Public Use
  Company Number: US-TEVA-2018-US-875881

PATIENT
  Sex: Female

DRUGS (1)
  1. METOPROLOL TEVA [Suspect]
     Active Substance: METOPROLOL
     Indication: HYPERTENSION

REACTIONS (2)
  - Malaise [Unknown]
  - Drug ineffective [Unknown]
